FAERS Safety Report 18799304 (Version 2)
Quarter: 2021Q1

REPORT INFORMATION
  Report Type: Report from Study
  Country: US (occurrence: US)
  Receive Date: 20210128
  Receipt Date: 20210225
  Transmission Date: 20210419
  Serious: Yes (Hospitalization, Other)
  Sender: FDA-Public Use
  Company Number: US-JNJFOC-20201032572

PATIENT
  Age: 47 Year
  Sex: Female

DRUGS (3)
  1. SPRAVATO [Suspect]
     Active Substance: ESKETAMINE
     Dosage: 84MG, 17 TOTAL DOSES
     Dates: start: 20200123, end: 20200929
  2. SPRAVATO [Suspect]
     Active Substance: ESKETAMINE
     Dates: start: 20201019, end: 20201019
  3. SPRAVATO [Suspect]
     Active Substance: ESKETAMINE
     Indication: DEPRESSION
     Dosage: 56MG, 7 TOTAL DOSES
     Dates: start: 20191205, end: 20200116

REACTIONS (5)
  - Sedation [Recovered/Resolved]
  - Vomiting [Unknown]
  - Hospitalisation [Recovered/Resolved]
  - Nausea [Unknown]
  - Product dose omission issue [Recovered/Resolved]

NARRATIVE: CASE EVENT DATE: 202003
